FAERS Safety Report 9804962 (Version 2)
Quarter: 2015Q1

REPORT INFORMATION
  Report Type: Report from Study
  Country: US (occurrence: US)
  Receive Date: 20140109
  Receipt Date: 20150105
  Transmission Date: 20150721
  Serious: Yes (Death)
  Sender: FDA-Public Use
  Company Number: US-ROCHE-1330659

PATIENT
  Sex: Female

DRUGS (12)
  1. AVASTIN [Suspect]
     Active Substance: BEVACIZUMAB
     Indication: RECTAL CANCER
     Dosage: RECEIVED ON  26/JUL/2011, 09/AUG/2011 AND 23/AUG/2011 AT SAME DOSE.
     Route: 042
     Dates: start: 20110712
  2. METOCLOPRAMIDE. [Concomitant]
     Active Substance: METOCLOPRAMIDE
     Dosage: PRN; 23/AUG/2011.
     Route: 042
  3. ERBITUX [Concomitant]
     Active Substance: CETUXIMAB
     Dosage: 26/JUL/2011
     Route: 042
  4. ERBITUX [Concomitant]
     Active Substance: CETUXIMAB
     Dosage: 11-OCT-2011
     Route: 042
  5. MAGNESIUM SULPHATE [Concomitant]
     Active Substance: MAGNESIUM SULFATE
  6. HYDROCORTISONE. [Concomitant]
     Active Substance: HYDROCORTISONE
     Dosage: 11/OCT/2011
     Route: 042
  7. ERBITUX [Concomitant]
     Active Substance: CETUXIMAB
     Dosage: 25-OCT-2011
     Route: 042
     Dates: start: 20110712
  8. NACL .9% [Concomitant]
     Route: 065
     Dates: start: 20110712
  9. HEPARIN [Concomitant]
     Active Substance: HEPARIN SODIUM
  10. ERBITUX [Concomitant]
     Active Substance: CETUXIMAB
     Indication: COLON CANCER
     Route: 042
  11. AVASTIN [Suspect]
     Active Substance: BEVACIZUMAB
     Dosage: RECEIVED ON 25/OCT/2011 AND 08/NOV/2011 AT SAME DOSE.
     Route: 042
     Dates: start: 20111011
  12. DIPHENHYDRAMINE [Concomitant]
     Active Substance: DIPHENHYDRAMINE
     Route: 042

REACTIONS (3)
  - Death [Fatal]
  - Rash erythematous [Unknown]
  - Device malfunction [Unknown]
